FAERS Safety Report 18004873 (Version 1)
Quarter: 2020Q3

REPORT INFORMATION
  Report Type: Spontaneous
  Country: US (occurrence: US)
  Receive Date: 20200709
  Receipt Date: 20200709
  Transmission Date: 20201103
  Serious: Yes (Other)
  Sender: FDA-Public Use
  Company Number: None

PATIENT
  Age: 47 Year
  Sex: Female
  Weight: 86.5 kg

DRUGS (18)
  1. HEPARIN 5,000 UNIT SUBCUT Q8H [Concomitant]
     Dates: start: 20200709
  2. LACOSAMIDE 150MG PEG BID [Concomitant]
     Dates: start: 20200630
  3. REMDESIVIR. [Suspect]
     Active Substance: REMDESIVIR
     Indication: COVID-19
     Route: 040
     Dates: start: 20200706, end: 20200709
  4. BENZTROPINE 1MG PEG BID [Concomitant]
     Dates: start: 20200630
  5. ENOXAPARIN 40MG SUBCUT DAILY [Concomitant]
     Dates: start: 20200627, end: 20200709
  6. SENNA 8.6MG PEG DAILY [Concomitant]
     Dates: start: 20200628
  7. LEVETIRACETAM 1000MG PEG BID [Concomitant]
     Dates: start: 20200705
  8. MAGNEWSIUM HYDROXIDE 8% SUSP 30ML ORAL BID [Concomitant]
     Dates: start: 20200627
  9. FERROUS SULFATE 325MG PEG DAILY [Concomitant]
     Dates: start: 20200701
  10. GABAPENTIN 300MG PEG BID [Concomitant]
     Dates: start: 20200630
  11. LEVOFLOXACIN 750MG IV Q24H [Concomitant]
     Dates: start: 20200630
  12. OLANZAPINE 20MG PEG BID [Concomitant]
     Dates: start: 20200708
  13. PRAZOSIN 1MG PEG QBEDTIME [Concomitant]
     Dates: start: 20200630
  14. BACLOFEN 5MG PEG TID [Concomitant]
     Dates: start: 20200630
  15. DOCUSATE 100MG PEG BID [Concomitant]
     Dates: start: 20200627
  16. LINEZOLID 600MG IV Q12H [Concomitant]
     Dates: start: 20200629
  17. MIRTAZAPINE 30MG PEG QBEDTIME [Concomitant]
     Dates: start: 20200630
  18. DEXAMETHASONE 6MG PO DAILY [Concomitant]
     Dates: start: 20200706

REACTIONS (2)
  - Urinary tract infection [None]
  - Renal impairment [None]

NARRATIVE: CASE EVENT DATE: 20200709
